FAERS Safety Report 4441482-9 (Version None)
Quarter: 2004Q3

REPORT INFORMATION
  Report Type: 
  Country: None (occurrence: None)
  Receive Date: 20040728
  Receipt Date: 20040512
  Transmission Date: 20050211
  Serious: No
  Sender: FDA-Public Use
  Company Number: USA040567410

PATIENT
  Age: 49 Year
  Sex: Female
  Weight: 58 kg

DRUGS (9)
  1. STRATTERA [Suspect]
     Indication: ATTENTION DEFICIT/HYPERACTIVITY DISORDER
     Dosage: 100 MG DAY
     Dates: start: 20030501
  2. EFFEXOR XR [Concomitant]
  3. PRILOSEC [Concomitant]
  4. ESTRACE [Concomitant]
  5. MULTI-VITAMIN [Concomitant]
  6. ASPIRIN [Concomitant]
  7. CALCIUM [Concomitant]
  8. FISH OIL [Concomitant]
  9. LIPITOR [Concomitant]

REACTIONS (1)
  - HEPATIC ENZYME INCREASED [None]
